FAERS Safety Report 13267307 (Version 1)
Quarter: 2017Q1

REPORT INFORMATION
  Report Type: Spontaneous
  Country: US (occurrence: US)
  Receive Date: 20170223
  Receipt Date: 20170223
  Transmission Date: 20170428
  Serious: No
  Sender: FDA-Public Use
  Company Number: None

PATIENT
  Age: 55 Year
  Sex: Female

DRUGS (1)
  1. PROLIA [Suspect]
     Active Substance: DENOSUMAB
     Indication: OSTEOPOROSIS
     Dosage: 60MG EVERY 6 MONTHS SUBCUTANEOUS
     Route: 058
     Dates: start: 20160919, end: 20160919

REACTIONS (3)
  - Rash [None]
  - Joint swelling [None]
  - Pain [None]

NARRATIVE: CASE EVENT DATE: 20160919
